FAERS Safety Report 15739936 (Version 2)
Quarter: 2019Q2

REPORT INFORMATION
  Report Type: Spontaneous
  Country: US (occurrence: US)
  Receive Date: 20181219
  Receipt Date: 20190509
  Transmission Date: 20190711
  Serious: Yes (Other)
  Sender: FDA-Public Use
  Company Number: US-SA-2018SA341615

PATIENT
  Age: 57 Year
  Sex: Female
  Weight: 62.6 kg

DRUGS (13)
  1. CIPRO [Concomitant]
     Active Substance: CIPROFLOXACIN HYDROCHLORIDE
  2. TAXOTERE [Suspect]
     Active Substance: DOCETAXEL
     Indication: BREAST CANCER FEMALE
     Dosage: 127MG THEN REDUCED TO 110MG
     Route: 042
     Dates: start: 20121126, end: 20121126
  3. LORTAB [LORATADINE] [Concomitant]
     Active Substance: LORATADINE
  4. TAXOTERE [Suspect]
     Active Substance: DOCETAXEL
     Dosage: 127MG THEN REDUCED TO 110MG
     Route: 042
     Dates: start: 20130327, end: 20130327
  5. BENTYL [Concomitant]
     Active Substance: DICYCLOMINE HYDROCHLORIDE
  6. NEXIUM I.V. [Concomitant]
     Active Substance: ESOMEPRAZOLE SODIUM
  7. ZANTAC [Concomitant]
     Active Substance: RANITIDINE HYDROCHLORIDE
  8. ATIVAN [Concomitant]
     Active Substance: LORAZEPAM
  9. DEXAMETHASONE. [Concomitant]
     Active Substance: DEXAMETHASONE
  10. IMITREX [Concomitant]
     Active Substance: SUMATRIPTAN SUCCINATE
  11. NEULASTA [Concomitant]
     Active Substance: PEGFILGRASTIM
  12. PARAPLATIN [Concomitant]
     Active Substance: CARBOPLATIN
  13. TRASTUZUMAB. [Concomitant]
     Active Substance: TRASTUZUMAB

REACTIONS (2)
  - Alopecia [Recovering/Resolving]
  - Psychological trauma [Unknown]

NARRATIVE: CASE EVENT DATE: 201309
